FAERS Safety Report 4748132-2 (Version None)
Quarter: 2005Q3

REPORT INFORMATION
  Report Type: 
  Country: None (occurrence: None)
  Receive Date: 20050818
  Receipt Date: 20050808
  Transmission Date: 20060218
  Serious: Yes (Other)
  Sender: FDA-Public Use
  Company Number: CN-MERCK-0508CHN00023

PATIENT
  Age: 34 Year
  Sex: Male

DRUGS (4)
  1. PRIMAXIN [Suspect]
     Indication: LUNG INFECTION
     Route: 042
     Dates: start: 20050804, end: 20050804
  2. FLUCONAZOLE [Concomitant]
     Indication: LUNG INFECTION
     Route: 065
     Dates: start: 20050802, end: 20050803
  3. LEVOFLOXACIN [Concomitant]
     Indication: LUNG INFECTION
     Route: 065
     Dates: start: 20050802, end: 20050803
  4. PIPERACILLIN SODIUM AND TAZOBACTAM SODIUM [Concomitant]
     Indication: LUNG INFECTION
     Route: 065
     Dates: start: 20050802, end: 20050803

REACTIONS (1)
  - ANAPHYLACTOID SHOCK [None]
